FAERS Safety Report 10184284 (Version 1)
Quarter: 2014Q2

REPORT INFORMATION
  Report Type: Spontaneous
  Country: US (occurrence: US)
  Receive Date: 20140520
  Receipt Date: 20140520
  Transmission Date: 20141212
  Serious: Yes (Other)
  Sender: FDA-Public Use
  Company Number: US-TEVA-483052USA

PATIENT
  Age: 70 Year
  Sex: Female

DRUGS (3)
  1. BENDAMUSTINE [Suspect]
     Indication: CHRONIC LYMPHOCYTIC LEUKAEMIA
     Dosage: UNKNOWN, 4 CYCLES
     Route: 065
     Dates: start: 2010, end: 201006
  2. BENDAMUSTINE [Suspect]
     Route: 065
  3. RITUXIMAB [Concomitant]
     Indication: PRODUCT USED FOR UNKNOWN INDICATION
     Dosage: CYCLIC
     Route: 065
     Dates: start: 2010

REACTIONS (1)
  - Haemolytic anaemia [Recovering/Resolving]
